FAERS Safety Report 5936248-4 (Version None)
Quarter: 2008Q4

REPORT INFORMATION
  Report Type: 
  Country: None (occurrence: None)
  Receive Date: 20081030
  Receipt Date: 20080513
  Transmission Date: 20090506
  Serious: No
  Sender: FDA-Public Use
  Company Number: A0727697A

PATIENT
  Age: 86 Year
  Sex: Female

DRUGS (5)
  1. SEREVENT [Suspect]
     Indication: ILL-DEFINED DISORDER
     Dosage: 1PUFF TWICE PER DAY
     Route: 055
     Dates: start: 20080509
  2. DIOVAN [Concomitant]
  3. AMIODARONE HCL [Concomitant]
  4. SYNTHROID [Concomitant]
  5. SUDAFED 12 HOUR [Concomitant]

REACTIONS (1)
  - DRUG INEFFECTIVE [None]
